FAERS Safety Report 14375045 (Version 3)
Quarter: 2018Q2

REPORT INFORMATION
  Report Type: Spontaneous
  Country: US (occurrence: US)
  Receive Date: 20180111
  Receipt Date: 20180510
  Transmission Date: 20180711
  Serious: No
  Sender: FDA-Public Use
  Company Number: US-PFIZER INC-2018012110

PATIENT
  Age: 79 Year
  Sex: Female
  Weight: 91 kg

DRUGS (1)
  1. XELJANZ XR [Suspect]
     Active Substance: TOFACITINIB CITRATE
     Indication: RHEUMATOID ARTHRITIS
     Dosage: 11 MG, 1X/DAY
     Route: 048
     Dates: start: 201709

REACTIONS (7)
  - Arthralgia [Unknown]
  - Gait inability [Unknown]
  - Joint swelling [Not Recovered/Not Resolved]
  - Sinusitis [Unknown]
  - Joint stiffness [Not Recovered/Not Resolved]
  - Drug dose omission [Unknown]
  - Pain [Not Recovered/Not Resolved]
